FAERS Safety Report 13481123 (Version 1)
Quarter: 2017Q2

REPORT INFORMATION
  Report Type: Report from Study
  Country: None (occurrence: RO)
  Receive Date: 20170425
  Receipt Date: 20170425
  Transmission Date: 20170830
  Serious: Yes (Death)
  Sender: FDA-Public Use
  Company Number: RO-ABBVIE-16P-135-1810393-00

PATIENT
  Age: 73 Year

DRUGS (12)
  1. MODERIBA [Suspect]
     Active Substance: RIBAVIRIN
     Route: 048
     Dates: start: 20161203, end: 20161220
  2. TAMSULOSINE [Concomitant]
     Active Substance: TAMSULOSIN HYDROCHLORIDE
     Indication: HYPERTENSION
  3. VIEKIRAX [Suspect]
     Active Substance: OMBITASVIR\PARITAPREVIR\RITONAVIR
     Indication: CHRONIC HEPATITIS C
     Route: 048
     Dates: start: 20161017, end: 20170108
  4. MODERIBA [Suspect]
     Active Substance: RIBAVIRIN
     Route: 048
     Dates: start: 20161220, end: 20170108
  5. METOPROLOL. [Concomitant]
     Active Substance: METOPROLOL
     Indication: MYOCARDIAL ISCHAEMIA
  6. METOPROLOL. [Concomitant]
     Active Substance: METOPROLOL
     Indication: AORTIC VALVE REPLACEMENT
  7. METOPROLOL. [Concomitant]
     Active Substance: METOPROLOL
     Indication: AORTIC STENOSIS
  8. EXVIERA [Suspect]
     Active Substance: DASABUVIR
     Indication: CHRONIC HEPATITIS C
     Route: 048
     Dates: start: 20161017, end: 20170108
  9. MODERIBA [Suspect]
     Active Substance: RIBAVIRIN
     Indication: CHRONIC HEPATITIS C
     Route: 048
     Dates: start: 20161017, end: 20161203
  10. METOPROLOLUM [Concomitant]
     Indication: HYPERTENSION
  11. OMNIC TOCAS [Concomitant]
     Indication: PROSTATIC ADENOMA
     Route: 048
  12. METOPROLOL. [Concomitant]
     Active Substance: METOPROLOL
     Indication: HYPERTENSION
     Route: 048

REACTIONS (6)
  - Hepatic cancer recurrent [Fatal]
  - Jaundice [Fatal]
  - Cardio-respiratory arrest [Fatal]
  - Fatigue [Recovering/Resolving]
  - Hepatic cirrhosis [Fatal]
  - Pruritus [Not Recovered/Not Resolved]

NARRATIVE: CASE EVENT DATE: 20161208
